FAERS Safety Report 16801942 (Version 2)
Quarter: 2019Q3

REPORT INFORMATION
  Report Type: Spontaneous
  Country: AR (occurrence: AR)
  Receive Date: 20190912
  Receipt Date: 20190919
  Transmission Date: 20191005
  Serious: Yes (Hospitalization, Other)
  Sender: FDA-Public Use
  Company Number: AR-009507513-1909ARG002783

PATIENT
  Age: 75 Year
  Sex: Female

DRUGS (3)
  1. KEYTRUDA [Suspect]
     Active Substance: PEMBROLIZUMAB
     Indication: METASTASES TO LUNG
     Dosage: UNK UNK, CYCLICAL
     Dates: start: 20190731, end: 20190822
  2. MORPHINE [Concomitant]
     Active Substance: MORPHINE
     Indication: DYSPNOEA
  3. MORPHINE [Concomitant]
     Active Substance: MORPHINE
     Indication: CANCER PAIN

REACTIONS (2)
  - Immunodeficiency [Unknown]
  - Pneumonia staphylococcal [Not Recovered/Not Resolved]

NARRATIVE: CASE EVENT DATE: 2019
